FAERS Safety Report 9058434 (Version 1)
Quarter: 2013Q1

REPORT INFORMATION
  Report Type: Spontaneous
  Country: FR (occurrence: None)
  Receive Date: 20130117
  Receipt Date: 20130117
  Transmission Date: 20140127
  Serious: Yes (Hospitalization)
  Sender: FDA-Public Use
  Company Number: DSA_61884_2013

PATIENT
  Age: 65 Year
  Sex: Female

DRUGS (13)
  1. FLAGYL / 00012501/ (FLAGYL INTRAVENOUS (NOT OTHERWISE SPECIFIED) [Suspect]
     Indication: BLOOD CULTURE POSITIVE
     Dates: start: 20120518, end: 20120518
  2. AUGMENTIN / 00852501 / (AUGMENTIN-AMOXICILLIN/ CLAVULANIC ACID) (NOT SPECIFIED) [Suspect]
     Dates: start: 20120517, end: 20120318
  3. AMOXICILLIN (AMOXICILLIN) (AUGMENTIN -AMOXICILLIN/ CLAVULANIC ACID) (NOT SPECIFIED) [Suspect]
     Indication: BLOOD CULTURE POSITIVE
     Route: 042
     Dates: start: 20120518
  4. CEFAZOLIN (CEFAZOLIN) [Suspect]
     Indication: BLOOD CULTURE POSITIVE
     Dosage: (DF INTRAVENOUS (NOT OTHERWISE SPECIFIED)
     Route: 042
     Dates: start: 20120606, end: 20120619
  5. GENTAMICIN (GENTAMICIN-GENAMICIN SULFATE) [Suspect]
     Indication: BLOOD CULTURE POSITIVE
     Dosage: (DF
     Route: 042
     Dates: start: 20120518
  6. ALDACTAZINE (UNKNOWN) [Concomitant]
  7. SPIRONOLACTONE (UNKNOWN) [Concomitant]
  8. LERCAN (UNKNOWN) [Concomitant]
  9. NOVONORM (UNKNOWN) [Concomitant]
  10. DIAMICRON (UNKNOWN) [Concomitant]
  11. GLUCOR (UNKNOWN) [Concomitant]
  12. XANAX (UNKNOWN) [Concomitant]
  13. BACTRIM [Concomitant]

REACTIONS (4)
  - Renal failure acute [None]
  - Drug hypersensitivity [None]
  - Abscess soft tissue [None]
  - Pseudomonas test positive [None]
